FAERS Safety Report 7498855-X (Version None)
Quarter: 2011Q2

REPORT INFORMATION
  Report Type: 
  Country: None (occurrence: None)
  Receive Date: 20110524
  Receipt Date: 20110429
  Transmission Date: 20111010
  Serious: Yes (Hospitalization)
  Sender: FDA-Public Use
  Company Number: US-BAYER-2011-014195

PATIENT
  Age: 31 Year
  Sex: Female
  Weight: 79.365 kg

DRUGS (2)
  1. YAZ [Suspect]
     Indication: ACNE
  2. CHANTIX [Concomitant]
     Dosage: UNK
     Dates: start: 20081021

REACTIONS (2)
  - GALLBLADDER DISORDER [None]
  - CHOLECYSTITIS CHRONIC [None]
